FAERS Safety Report 11547534 (Version 1)
Quarter: 2015Q3

REPORT INFORMATION
  Report Type: Spontaneous
  Country: US (occurrence: US)
  Receive Date: 20150924
  Receipt Date: 20150924
  Transmission Date: 20151125
  Serious: No
  Sender: FDA-Public Use
  Company Number: US-BAYER-2015-424126

PATIENT
  Age: 77 Year
  Sex: Female
  Weight: 83.9 kg

DRUGS (2)
  1. METFORMIN [Concomitant]
     Active Substance: METFORMIN HYDROCHLORIDE
  2. CLARITIN REDITABS [Suspect]
     Active Substance: LORATADINE
     Indication: SEASONAL ALLERGY
     Dosage: 1 DF, QD
     Route: 048
     Dates: start: 20150912, end: 20150913

REACTIONS (1)
  - Product use issue [None]

NARRATIVE: CASE EVENT DATE: 20150913
